FAERS Safety Report 19724502 (Version 1)
Quarter: 2021Q3

REPORT INFORMATION
  Report Type: Spontaneous
  Country: US (occurrence: US)
  Receive Date: 20210819
  Receipt Date: 20210819
  Transmission Date: 20211014
  Serious: No
  Sender: FDA-Public Use
  Company Number: US-ARBOR PHARMACEUTICALS, LLC-US-2020ARB001073

PATIENT
  Age: 8 Year
  Sex: Male

DRUGS (4)
  1. TRIPTODUR [Suspect]
     Active Substance: TRIPTORELIN
  2. TRIPTODUR [Suspect]
     Active Substance: TRIPTORELIN
     Dosage: UNK, SINGLE
     Route: 030
     Dates: start: 20201130, end: 20201130
  3. TRIPTODUR [Suspect]
     Active Substance: TRIPTORELIN
  4. TRIPTODUR [Suspect]
     Active Substance: TRIPTORELIN
     Indication: PRODUCT USED FOR UNKNOWN INDICATION
     Dosage: UNK, SINGLE
     Route: 030
     Dates: start: 20201106, end: 20201106

REACTIONS (6)
  - Product reconstitution quality issue [Unknown]
  - Product dose omission issue [Unknown]
  - Needle issue [Unknown]
  - Pruritus [Not Recovered/Not Resolved]
  - Hypertrichosis [Not Recovered/Not Resolved]
  - Injection site pruritus [Recovering/Resolving]

NARRATIVE: CASE EVENT DATE: 20201106
